FAERS Safety Report 4769019-5 (Version None)
Quarter: 2005Q3

REPORT INFORMATION
  Report Type: 
  Country: None (occurrence: None)
  Receive Date: 20050906
  Receipt Date: 20050510
  Transmission Date: 20060218
  Serious: No
  Sender: FDA-Public Use
  Company Number: 2005-BP-07030BP

PATIENT
  Age: 62 Year
  Sex: Female

DRUGS (6)
  1. SPIRIVA [Suspect]
     Indication: BRONCHITIS
     Dosage: 18 MCG (18 MCG,QD),IH
     Dates: start: 20040714
  2. SPIRIVA [Suspect]
     Indication: COUGH
     Dosage: 18 MCG (18 MCG,QD),IH
     Dates: start: 20040714
  3. SPIRIVA [Suspect]
     Indication: HYPERSENSITIVITY
     Dosage: 18 MCG (18 MCG,QD),IH
     Dates: start: 20040714
  4. CLARINEX [Concomitant]
  5. ALBUTEROL [Concomitant]
  6. NASACORT AQ NASAL SPRAY (BUDESONIDE) [Concomitant]

REACTIONS (1)
  - DYSGEUSIA [None]
